FAERS Safety Report 21281398 (Version 3)
Quarter: 2022Q4

REPORT INFORMATION
  Report Type: Spontaneous
  Country: JP (occurrence: JP)
  Receive Date: 20220901
  Receipt Date: 20221007
  Transmission Date: 20230113
  Serious: Yes (Hospitalization, Other)
  Sender: FDA-Public Use
  Company Number: JP-MSD-2208JPN003055J

PATIENT
  Age: 71 Year
  Sex: Male
  Weight: 52 kg

DRUGS (6)
  1. ROCURONIUM BROMIDE [Suspect]
     Active Substance: ROCURONIUM BROMIDE
     Indication: Induction of anaesthesia
     Dosage: 100 MILLIGRAM
     Route: 042
  2. BRIDION [Suspect]
     Active Substance: SUGAMMADEX
     Indication: Neuromuscular blockade reversal
     Dosage: 200 MILLIGRAM, ONCE
     Route: 065
  3. PROPOFOL [Concomitant]
     Active Substance: PROPOFOL
     Indication: Induction of anaesthesia
     Dosage: 80 MILLIGRAM, ONCE
     Route: 065
  4. REMIFENTANIL HYDROCHLORIDE [Concomitant]
     Active Substance: REMIFENTANIL HYDROCHLORIDE
     Indication: Induction and maintenance of anaesthesia
     Dosage: 0.1-0.2 MICROGRAM/KG/MIN
     Route: 065
  5. ROPIVACAINE HYDROCHLORIDE [Concomitant]
     Active Substance: ROPIVACAINE HYDROCHLORIDE
     Indication: Postoperative analgesia
     Dosage: 25 MILLILITER
     Route: 065
  6. SEVOFLURANE [Concomitant]
     Active Substance: SEVOFLURANE
     Indication: Maintenance of anaesthesia
     Dosage: UNK
     Route: 065

REACTIONS (2)
  - Respiratory failure [Recovered/Resolved]
  - Recurrence of neuromuscular blockade [Recovered/Resolved]
